FAERS Safety Report 20169536 (Version 4)
Quarter: 2022Q4

REPORT INFORMATION
  Report Type: Spontaneous
  Country: US (occurrence: US)
  Receive Date: 20211210
  Receipt Date: 20221128
  Transmission Date: 20230113
  Serious: Yes (Hospitalization, Other)
  Sender: FDA-Public Use
  Company Number: US-009507513-2112USA000800

PATIENT
  Age: 81 Year
  Sex: Female
  Weight: 53.515 kg

DRUGS (1)
  1. JANUMET [Suspect]
     Active Substance: METFORMIN HYDROCHLORIDE\SITAGLIPTIN PHOSPHATE
     Indication: Diabetes mellitus
     Dosage: 50 (UNITS NOT PROVIDED), EVERY DAY
     Route: 048
     Dates: start: 20180603, end: 20210507

REACTIONS (2)
  - Impaired gastric emptying [Recovered/Resolved]
  - Failure to thrive [Recovered/Resolved]

NARRATIVE: CASE EVENT DATE: 20210201
